FAERS Safety Report 21329163 (Version 1)
Quarter: 2022Q3

REPORT INFORMATION
  Report Type: Spontaneous
  Country: CA (occurrence: CA)
  Receive Date: 20220913
  Receipt Date: 20220913
  Transmission Date: 20221027
  Serious: Yes (Hospitalization, Other)
  Sender: FDA-Public Use
  Company Number: CA-PFIZER INC-202201142756

PATIENT
  Age: 16 Year
  Sex: Female
  Weight: 49 kg

DRUGS (12)
  1. DOXORUBICIN HYDROCHLORIDE [Suspect]
     Active Substance: DOXORUBICIN HYDROCHLORIDE
     Indication: Hodgkin^s disease
     Dosage: 39 MG, CYCLIC
  2. VINCRISTINE SULFATE [Suspect]
     Active Substance: VINCRISTINE SULFATE
     Indication: Hodgkin^s disease
     Dosage: 2.2 MG, CYCLIC
  3. BLEOMYCIN SULFATE [Suspect]
     Active Substance: BLEOMYCIN SULFATE
     Indication: Hodgkin^s disease
     Dosage: 7.8 IU, CYCLIC
  4. CYCLOPHOSPHAMIDE [Suspect]
     Active Substance: CYCLOPHOSPHAMIDE
     Indication: Hodgkin^s disease
     Dosage: 930 MG, CYCLIC
  5. ETOPOSIDE [Suspect]
     Active Substance: ETOPOSIDE
     Indication: Hodgkin^s disease
     Dosage: 194 MG, CYCLIC
  6. PREDNISONE [Suspect]
     Active Substance: PREDNISONE
     Indication: Hodgkin^s disease
     Dosage: 30 MG, CYCLIC
  7. ACETAMINOPHEN [Concomitant]
     Active Substance: ACETAMINOPHEN
     Dosage: UNK
  8. FILGRASTIM [Concomitant]
     Active Substance: FILGRASTIM
     Dosage: UNK
  9. LORAZEPAM [Concomitant]
     Active Substance: LORAZEPAM
     Dosage: UNK
     Route: 065
  10. OLANZAPINE [Concomitant]
     Active Substance: OLANZAPINE
     Dosage: UNK
  11. ONDANSETRON [Concomitant]
     Active Substance: ONDANSETRON
     Dosage: UNK
  12. SULFAMETHOXAZOLE\TRIMETHOPRIM [Concomitant]
     Active Substance: SULFAMETHOXAZOLE\TRIMETHOPRIM
     Dosage: UNK

REACTIONS (1)
  - Febrile neutropenia [Recovered/Resolved]
